FAERS Safety Report 8583064-3 (Version None)
Quarter: 2012Q3

REPORT INFORMATION
  Report Type: 
  Country: None (occurrence: None)
  Receive Date: 20120727
  Receipt Date: 20120712
  Transmission Date: 20120928
  Serious: Yes (Death, Other)
  Sender: FDA-Public Use
  Company Number: 011795

PATIENT
  Age: 50 Year
  Sex: Female

DRUGS (4)
  1. FLUDARABINE PHOSPHATE [Concomitant]
  2. ATGAM [Concomitant]
  3. THIOTEPA [Concomitant]
  4. BUSULFEX [Suspect]
     Dosage: 9.6 MG/KG

REACTIONS (2)
  - LEUKAEMIA RECURRENT [None]
  - ACUTE GRAFT VERSUS HOST DISEASE IN INTESTINE [None]
